FAERS Safety Report 9575767 (Version 1)
Quarter: 2013Q4

REPORT INFORMATION
  Report Type: Spontaneous
  Country: US (occurrence: US)
  Receive Date: 20131001
  Receipt Date: 20131001
  Transmission Date: 20140711
  Serious: No
  Sender: FDA-Public Use
  Company Number: US-AMGEN-USASP2012058718

PATIENT
  Age: 55 Year
  Sex: Female

DRUGS (1)
  1. PROCRIT [Suspect]
     Indication: ANAEMIA
     Dosage: 40000 UNIT, UNK
     Route: 058
     Dates: start: 201208

REACTIONS (2)
  - Blood count abnormal [Unknown]
  - Anaemia [Unknown]
